FAERS Safety Report 5707162-4 (Version None)
Quarter: 2008Q2

REPORT INFORMATION
  Report Type: 
  Country: None (occurrence: None)
  Receive Date: 20080414
  Receipt Date: 20080414
  Transmission Date: 20081010
  Serious: Yes (Life-Threatening, Hospitalization, Other)
  Sender: FDA-Public Use
  Company Number: None

PATIENT
  Age: 47 Year
  Sex: Male
  Weight: 127.0072 kg

DRUGS (2)
  1. KENALOG [Suspect]
     Indication: INJECTION
     Dosage: 2 CC  2 TIMES  EPIDURAL
     Route: 008
     Dates: start: 20070918, end: 20070918
  2. MARCAINE [Suspect]
     Indication: INJECTION
     Dosage: 2 CC  2 TIMES  EPIDURAL
     Route: 008
     Dates: start: 20071120, end: 20071120

REACTIONS (17)
  - ABDOMINAL DISTENSION [None]
  - ARTHRALGIA [None]
  - ASTHENIA [None]
  - BACK PAIN [None]
  - DECREASED APPETITE [None]
  - DEPRESSION [None]
  - DIZZINESS [None]
  - DYSPHAGIA [None]
  - GASTROINTESTINAL DISORDER [None]
  - HYPERSENSITIVITY [None]
  - OEDEMA PERIPHERAL [None]
  - PAIN IN EXTREMITY [None]
  - PHARYNGEAL OEDEMA [None]
  - SALIVARY HYPERSECRETION [None]
  - SWELLING FACE [None]
  - SWOLLEN TONGUE [None]
  - WEIGHT INCREASED [None]
